FAERS Safety Report 10065245 (Version 4)
Quarter: 2014Q3

REPORT INFORMATION
  Report Type: Spontaneous
  Country: JP (occurrence: JP)
  Receive Date: 20140408
  Receipt Date: 20140707
  Transmission Date: 20150326
  Serious: Yes (Death, Hospitalization, Other)
  Sender: FDA-Public Use
  Company Number: JP-PFIZER INC-2014097181

PATIENT
  Age: 94 Year
  Sex: Female
  Weight: 35 kg

DRUGS (6)
  1. SOLDACTONE [Concomitant]
     Active Substance: CANRENOATE POTASSIUM
     Indication: PLEURAL EFFUSION
     Dosage: 400 MG, 2X/DAY
     Dates: start: 20130314, end: 20130328
  2. ZOSYN [Concomitant]
     Active Substance: PIPERACILLIN SODIUM\TAZOBACTAM SODIUM
     Indication: DECUBITUS ULCER
     Dosage: 9 MG, 2X/DAY
     Dates: start: 20130327, end: 20130328
  3. FOSPHENYTOIN SODIUM. [Suspect]
     Active Substance: FOSPHENYTOIN SODIUM
     Indication: ORAL ADMINISTRATION COMPLICATION
     Dosage: 3.5 UL, DAILY X1
     Route: 042
     Dates: start: 20140328, end: 20140409
  4. PRODIF [Suspect]
     Active Substance: FOSFLUCONAZOLE
     Indication: BLOOD BETA-D-GLUCAN INCREASED
  5. PRODIF [Suspect]
     Active Substance: FOSFLUCONAZOLE
     Indication: FUNGAL INFECTION
     Dosage: 400 MG/24 HR
     Dates: start: 20130327, end: 20130404
  6. FOSPHENYTOIN SODIUM. [Suspect]
     Active Substance: FOSPHENYTOIN SODIUM
     Indication: EPILEPSY
     Dosage: 8.4 ML, DAILY
     Route: 042
     Dates: start: 20140327, end: 20140327

REACTIONS (4)
  - Sepsis [Fatal]
  - General physical health deterioration [Not Recovered/Not Resolved]
  - Blood pressure decreased [Not Recovered/Not Resolved]
  - Infection [Not Recovered/Not Resolved]

NARRATIVE: CASE EVENT DATE: 20140327
